FAERS Safety Report 24065954 (Version 1)
Quarter: 2024Q3

REPORT INFORMATION
  Report Type: Spontaneous
  Country: US (occurrence: None)
  Receive Date: 20240709
  Receipt Date: 20240709
  Transmission Date: 20241017
  Serious: Yes (Hospitalization)
  Sender: Public
  Company Number: None

PATIENT
  Age: 62 Year
  Sex: Male
  Weight: 89.9 kg

DRUGS (1)
  1. CYTARABINE [Suspect]
     Active Substance: CYTARABINE

REACTIONS (6)
  - Pyrexia [None]
  - Oropharyngeal pain [None]
  - Stomatitis [None]
  - Fatigue [None]
  - Chills [None]
  - Pancytopenia [None]

NARRATIVE: CASE EVENT DATE: 20240707
